FAERS Safety Report 11566840 (Version 1)
Quarter: 2015Q3

REPORT INFORMATION
  Report Type: Spontaneous
  Country: US (occurrence: US)
  Receive Date: 20150916
  Receipt Date: 20150916
  Transmission Date: 20151125
  Serious: No
  Sender: FDA-Public Use
  Company Number: US-ELI_LILLY_AND_COMPANY-US200906006396

PATIENT
  Sex: Female

DRUGS (2)
  1. CALCIUM                                 /N/A/ [Concomitant]
     Dosage: UNK, 3/D
  2. FORTEO [Suspect]
     Active Substance: TERIPARATIDE
     Dates: start: 200905

REACTIONS (2)
  - Headache [Not Recovered/Not Resolved]
  - Photophobia [Not Recovered/Not Resolved]

NARRATIVE: CASE EVENT DATE: 2009
